FAERS Safety Report 9364224 (Version 1)
Quarter: 2013Q2

REPORT INFORMATION
  Report Type: Spontaneous
  Country: CA (occurrence: CA)
  Receive Date: 20130624
  Receipt Date: 20130624
  Transmission Date: 20140414
  Serious: Yes (Other)
  Sender: FDA-Public Use
  Company Number: CA-PFIZER INC-2013186164

PATIENT
  Sex: 0

DRUGS (1)
  1. RAPAMUNE [Suspect]
     Dosage: UNK

REACTIONS (1)
  - Cardiac failure congestive [Not Recovered/Not Resolved]
